FAERS Safety Report 25608316 (Version 1)
Quarter: 2025Q3

REPORT INFORMATION
  Report Type: Spontaneous
  Country: US (occurrence: US)
  Receive Date: 20250725
  Receipt Date: 20250725
  Transmission Date: 20251021
  Serious: No
  Sender: MERCK SHARP & DOHME LLC
  Company Number: US-009507513-2310838

PATIENT
  Age: 60 Year
  Sex: Male

DRUGS (2)
  1. ERTAPENEM [Suspect]
     Active Substance: ERTAPENEM
     Indication: Arthritis bacterial
  2. daptpmycin [Concomitant]
     Indication: Osteomyelitis

REACTIONS (1)
  - Product use in unapproved indication [Unknown]
